FAERS Safety Report 9384860 (Version 1)
Quarter: 2013Q3

REPORT INFORMATION
  Report Type: Spontaneous
  Country: GR (occurrence: GR)
  Receive Date: 20130705
  Receipt Date: 20130705
  Transmission Date: 20140515
  Serious: Yes (Death, Hospitalization, Other)
  Sender: FDA-Public Use
  Company Number: GR-ABBOTT-13X-066-1114998-00

PATIENT
  Age: 83 Year
  Sex: Female
  Weight: 70 kg

DRUGS (7)
  1. KLARICID [Suspect]
     Indication: PRODUCT USED FOR UNKNOWN INDICATION
     Dates: start: 20130117
  2. EXTRASTATIN [Interacting]
     Indication: BLOOD TRIGLYCERIDES INCREASED
     Dates: start: 20130117
  3. VASTAREL [Suspect]
     Indication: PRODUCT USED FOR UNKNOWN INDICATION
  4. NEOCARDON [Suspect]
     Indication: PRODUCT USED FOR UNKNOWN INDICATION
  5. ZYLORIC [Concomitant]
     Indication: PRODUCT USED FOR UNKNOWN INDICATION
  6. NEXIUM [Concomitant]
     Indication: PRODUCT USED FOR UNKNOWN INDICATION
     Dates: start: 20130117
  7. BOCACORT S [Concomitant]
     Indication: PRODUCT USED FOR UNKNOWN INDICATION
     Dates: start: 20130117

REACTIONS (15)
  - Rhabdomyolysis [Fatal]
  - Renal failure acute [Fatal]
  - Blood potassium increased [Fatal]
  - Fall [Fatal]
  - Labelled drug-drug interaction medication error [Fatal]
  - Septic shock [Fatal]
  - Cardio-respiratory arrest [Fatal]
  - Pneumonia [Fatal]
  - Drug interaction [Unknown]
  - Blood pressure decreased [Unknown]
  - Hyperkalaemia [Unknown]
  - Abdominal tenderness [Unknown]
  - Renal cyst [Unknown]
  - Aortic arteriosclerosis [Unknown]
  - Aortic thrombosis [Unknown]
